FAERS Safety Report 23865871 (Version 1)
Quarter: 2024Q2

REPORT INFORMATION
  Report Type: Spontaneous
  Country: US (occurrence: US)
  Receive Date: 20240517
  Receipt Date: 20240517
  Transmission Date: 20240716
  Serious: No
  Sender: FDA-Public Use
  Company Number: HIKM2401408

PATIENT
  Sex: Female

DRUGS (1)
  1. PREDNISONE [Suspect]
     Active Substance: PREDNISONE
     Indication: Arthritis
     Dosage: EVERY DAY
     Route: 065
     Dates: start: 2021, end: 202307

REACTIONS (2)
  - Weight increased [Unknown]
  - Weight decreased [Unknown]
